FAERS Safety Report 5038644-9 (Version None)
Quarter: 2006Q2

REPORT INFORMATION
  Report Type: 
  Country: None (occurrence: None)
  Receive Date: 20060629
  Receipt Date: 20060616
  Transmission Date: 20061013
  Serious: Yes (Hospitalization)
  Sender: FDA-Public Use
  Company Number: US-BRISTOL-MYERS SQUIBB COMPANY-13415278

PATIENT
  Sex: Female
  Weight: 36 kg

DRUGS (6)
  1. CARBIDOPA + LEVODOPA [Suspect]
     Indication: PARKINSON'S DISEASE
     Dosage: DOSAGE: 25MG/100MG
     Route: 048
     Dates: start: 20050101
  2. COMTAN [Concomitant]
  3. OCUPRESS [Concomitant]
  4. LUMIGAN [Concomitant]
  5. B12 [Concomitant]
     Route: 060
  6. MIRAPEX [Concomitant]

REACTIONS (9)
  - ABNORMAL DREAMS [None]
  - BLOOD SODIUM DECREASED [None]
  - DIZZINESS [None]
  - DRUG INEFFECTIVE [None]
  - HALLUCINATION [None]
  - HALLUCINATION, VISUAL [None]
  - HYPOTENSION [None]
  - MIDDLE INSOMNIA [None]
  - SOMNOLENCE [None]
